FAERS Safety Report 18385064 (Version 1)
Quarter: 2020Q4

REPORT INFORMATION
  Report Type: Other
  Country: AU (occurrence: AU)
  Receive Date: 20201014
  Receipt Date: 20201014
  Transmission Date: 20210114
  Serious: Yes (Other)
  Sender: FDA-Public Use
  Company Number: AU-ROCHE-2693884

PATIENT
  Age: 43 Year
  Sex: Male

DRUGS (3)
  1. COBIMETINIB. [Suspect]
     Active Substance: COBIMETINIB
     Route: 065
  2. VEMURAFENIB. [Suspect]
     Active Substance: VEMURAFENIB
     Indication: BRAF GENE MUTATION
     Route: 065
     Dates: start: 201803
  3. COBIMETINIB. [Suspect]
     Active Substance: COBIMETINIB
     Indication: BRAF GENE MUTATION
     Dosage: 3 WEEKS ON/1 WEEK OFF
     Route: 065
     Dates: start: 201803

REACTIONS (5)
  - Photosensitivity reaction [Recovering/Resolving]
  - Hepatic enzyme increased [Unknown]
  - Sunburn [Recovering/Resolving]
  - Cholestasis [Unknown]
  - Drug eruption [Recovering/Resolving]
